FAERS Safety Report 23270935 (Version 2)
Quarter: 2023Q4

REPORT INFORMATION
  Report Type: Spontaneous
  Country: US (occurrence: US)
  Receive Date: 20231207
  Receipt Date: 20231208
  Transmission Date: 20240110
  Serious: Yes (Hospitalization)
  Sender: FDA-Public Use
  Company Number: US-MYLANLABS-2023M1128927

PATIENT
  Age: 57 Year
  Sex: Male

DRUGS (9)
  1. HEPARIN [Suspect]
     Active Substance: HEPARIN SODIUM
     Indication: Anticoagulant therapy
     Dosage: UNK
     Route: 065
  2. BIVALIRUDIN [Suspect]
     Active Substance: BIVALIRUDIN
     Indication: Autoimmune heparin-induced thrombocytopenia
     Dosage: UNK
     Route: 065
  3. ARGATROBAN [Suspect]
     Active Substance: ARGATROBAN
     Indication: Autoimmune heparin-induced thrombocytopenia
     Dosage: UNK
     Route: 065
  4. PREDNISONE [Suspect]
     Active Substance: PREDNISONE
     Indication: Autoimmune heparin-induced thrombocytopenia
     Dosage: 1 MILLIGRAM/KILOGRAM, QD
     Route: 065
  5. PREDNISONE [Suspect]
     Active Substance: PREDNISONE
     Dosage: UNK, WITH A 4-6 WEEK TAPER
     Route: 065
  6. DEXAMETHASONE [Suspect]
     Active Substance: DEXAMETHASONE
     Indication: Autoimmune heparin-induced thrombocytopenia
     Dosage: 40 MILLIGRAM, QD, ON DAYS 20-23
     Route: 042
  7. RITUXIMAB [Suspect]
     Active Substance: RITUXIMAB
     Indication: Autoimmune heparin-induced thrombocytopenia
     Dosage: 375 MILLIGRAM/SQ. METER, QW
     Route: 065
  8. SOLU-MEDROL [Suspect]
     Active Substance: METHYLPREDNISOLONE SODIUM SUCCINATE
     Indication: Autoimmune heparin-induced thrombocytopenia
     Dosage: 250 MILLIGRAM, Q6H, ON DAYS 14-15
     Route: 065
  9. PRIVIGEN [Suspect]
     Active Substance: HUMAN IMMUNOGLOBULIN G
     Indication: Autoimmune heparin-induced thrombocytopenia
     Dosage: 1 GRAM PER KILOGRAM, 1 G/KG ON DAY 15 AND ON DAYS 20-21
     Route: 065

REACTIONS (10)
  - Drug ineffective for unapproved indication [Unknown]
  - Autoimmune heparin-induced thrombocytopenia [Recovered/Resolved]
  - Acute myocardial infarction [Recovered/Resolved]
  - Vascular stent thrombosis [Recovered/Resolved]
  - Cardiac ventricular thrombosis [Recovered/Resolved]
  - Pulmonary embolism [Recovered/Resolved]
  - Disseminated intravascular coagulation [Recovered/Resolved]
  - Deep vein thrombosis [Recovered/Resolved]
  - Vascular stent occlusion [Recovered/Resolved]
  - Off label use [Unknown]
